FAERS Safety Report 8024019-7 (Version None)
Quarter: 2011Q4

REPORT INFORMATION
  Report Type: 
  Country: None (occurrence: None)
  Receive Date: 20111230
  Receipt Date: 20111219
  Transmission Date: 20120403
  Serious: Yes (Death)
  Sender: FDA-Public Use
  Company Number: JP-2011-13217

PATIENT
  Age: 58 Year
  Sex: Male

DRUGS (3)
  1. HANP (CARPERITIDE) [Concomitant]
  2. SAMSCA [Suspect]
     Dosage: 7.5 MG MILLIGRAM(S), DAILY DOSE, ORAL; 15 MG MILLIGRAM(S), DAILY DOSE, ORAL
     Route: 048
     Dates: end: 20111209
  3. SAMSCA [Suspect]
     Dosage: 7.5 MG MILLIGRAM(S), DAILY DOSE, ORAL; 15 MG MILLIGRAM(S), DAILY DOSE, ORAL
     Route: 048
     Dates: start: 20111210, end: 20111212

REACTIONS (2)
  - ANURIA [None]
  - HEPATITIS FULMINANT [None]
